FAERS Safety Report 7161688-8 (Version None)
Quarter: 2010Q4

REPORT INFORMATION
  Report Type: 
  Country: None (occurrence: None)
  Receive Date: 20101215
  Receipt Date: 20101202
  Transmission Date: 20110411
  Serious: Yes (Hospitalization)
  Sender: FDA-Public Use
  Company Number: GB-EISAI INC.-E7389-00943-CLI-GB

PATIENT
  Sex: Female
  Weight: 92 kg

DRUGS (2)
  1. E7389 (BOLD) [Suspect]
     Indication: OVARIAN CANCER
     Route: 041
     Dates: start: 20100224, end: 20100505
  2. CAPECITABINE [Concomitant]
     Indication: OVARIAN CANCER
     Route: 048
     Dates: start: 20100224, end: 20100511

REACTIONS (1)
  - PULMONARY EMBOLISM [None]
